FAERS Safety Report 6307085-6 (Version None)
Quarter: 2009Q3

REPORT INFORMATION
  Report Type: 
  Country: None (occurrence: None)
  Receive Date: 20090812
  Receipt Date: 20090807
  Transmission Date: 20100115
  Serious: Yes (Death, Other)
  Sender: FDA-Public Use
  Company Number: PL-GENENTECH-283607

PATIENT
  Sex: Female
  Weight: 63.991 kg

DRUGS (7)
  1. BEVACIZUMAB [Suspect]
     Indication: NON-SMALL CELL LUNG CANCER
     Dosage: 960 MG, Q3W
     Route: 042
     Dates: start: 20090128, end: 20090422
  2. CARBOPLATIN [Suspect]
     Indication: NON-SMALL CELL LUNG CANCER
     Dosage: 678 MG, Q3W
     Route: 042
     Dates: start: 20090128, end: 20090422
  3. PACLITAXEL [Suspect]
     Indication: NON-SMALL CELL LUNG CANCER
     Dosage: 324 MG, Q3W
     Route: 042
     Dates: start: 20090128, end: 20090422
  4. LOSARTAN [Concomitant]
     Indication: DRUG USE FOR UNKNOWN INDICATION
     Dosage: UNK
     Dates: start: 20090330, end: 20090503
  5. PRAMOLAN [Concomitant]
     Indication: ANXIETY
     Dosage: UNK
     Dates: start: 20090101, end: 20090503
  6. IMOVANE [Concomitant]
     Indication: INSOMNIA
     Dosage: UNK
     Dates: start: 20090101, end: 20090503
  7. THIAMAZOLE [Concomitant]
     Indication: DRUG USE FOR UNKNOWN INDICATION
     Dosage: UNK
     Dates: start: 20090101, end: 20090503

REACTIONS (2)
  - FEBRILE NEUTROPENIA [None]
  - GENERAL PHYSICAL HEALTH DETERIORATION [None]
